FAERS Safety Report 11790011 (Version 1)
Quarter: 2015Q4

REPORT INFORMATION
  Report Type: Spontaneous
  Country: US (occurrence: US)
  Receive Date: 20151201
  Receipt Date: 20151201
  Transmission Date: 20160305
  Serious: Yes (Other)
  Sender: FDA-Public Use
  Company Number: US-PFIZER INC-2015402656

PATIENT
  Sex: Male

DRUGS (2)
  1. MYSOLINE [Suspect]
     Active Substance: PRIMIDONE
     Dosage: UNK
  2. DILANTIN [Suspect]
     Active Substance: PHENYTOIN
     Dosage: UNK

REACTIONS (5)
  - Stomatitis [Unknown]
  - Seizure [Unknown]
  - Skin irritation [Unknown]
  - Anticonvulsant drug level abnormal [Unknown]
  - Haemorrhage [Unknown]
